FAERS Safety Report 15351979 (Version 1)
Quarter: 2018Q3

REPORT INFORMATION
  Report Type: Spontaneous
  Country: IE (occurrence: IE)
  Receive Date: 20180905
  Receipt Date: 20180905
  Transmission Date: 20181010
  Serious: Yes (Hospitalization)
  Sender: FDA-Public Use
  Company Number: IE-PFIZER INC-2018355373

PATIENT
  Age: 77 Year
  Sex: Female

DRUGS (8)
  1. VANCOMYCIN HCL [Suspect]
     Active Substance: VANCOMYCIN HYDROCHLORIDE
     Dosage: UNK
  2. BISOPROLOL [Concomitant]
     Active Substance: BISOPROLOL
  3. AZATHIOPRINE. [Concomitant]
     Active Substance: AZATHIOPRINE
  4. ESOMEPRAZOLE [Concomitant]
     Active Substance: ESOMEPRAZOLE
  5. ELIQUIS [Concomitant]
     Active Substance: APIXABAN
  6. VANCOMYCIN HCL [Suspect]
     Active Substance: VANCOMYCIN HYDROCHLORIDE
     Indication: INFECTION
     Dosage: 1 G, 2X/DAY (7 DOSES)
     Route: 042
     Dates: start: 20180728, end: 20180803
  7. INSULIN [Concomitant]
     Active Substance: INSULIN NOS
  8. CEFTRIAXONE. [Concomitant]
     Active Substance: CEFTRIAXONE

REACTIONS (3)
  - Red man syndrome [Recovered/Resolved]
  - Anaphylactic reaction [Recovered/Resolved]
  - Respiratory distress [Recovered/Resolved]
